FAERS Safety Report 19017919 (Version 1)
Quarter: 2021Q1

REPORT INFORMATION
  Report Type: Spontaneous
  Country: US (occurrence: US)
  Receive Date: 20210316
  Receipt Date: 20210316
  Transmission Date: 20210420
  Serious: No
  Sender: FDA-Public Use
  Company Number: US-GALDERMA-US2020047683

PATIENT
  Sex: Female

DRUGS (1)
  1. DIFFERIN GEL [Suspect]
     Active Substance: ADAPALENE
     Indication: PRODUCT USED FOR UNKNOWN INDICATION
     Dosage: 0.1%
     Route: 061
     Dates: start: 2020

REACTIONS (5)
  - Pruritus [Unknown]
  - Swelling of eyelid [Unknown]
  - Rash erythematous [Unknown]
  - Eyelid skin dryness [Unknown]
  - Dry skin [Unknown]

NARRATIVE: CASE EVENT DATE: 2020
